FAERS Safety Report 5081300-1 (Version None)
Quarter: 2006Q3

REPORT INFORMATION
  Report Type: 
  Country: None (occurrence: None)
  Receive Date: 20060810
  Receipt Date: 20060801
  Transmission Date: 20061208
  Serious: Yes (Hospitalization)
  Sender: FDA-Public Use
  Company Number: S06-USA-02472-02

PATIENT
  Sex: Female
  Weight: 2.522 kg

DRUGS (6)
  1. LEXAPRO [Suspect]
     Dates: end: 20060624
  2. METHADONE HCL [Suspect]
     Dosage: 35 MG BID TRANSPLACENTAL
     Route: 064
     Dates: end: 20060624
  3. VITAMIN AND MINERAL PRENATAL SUPPLEMENT W/ FOLIC ACID CAP [Concomitant]
  4. SYNTHROID [Concomitant]
  5. VITAMIN B6 [Concomitant]
  6. PROPRANOLOL [Concomitant]

REACTIONS (3)
  - AGITATION NEONATAL [None]
  - DRUG EXPOSURE DURING PREGNANCY [None]
  - DRUG WITHDRAWAL SYNDROME NEONATAL [None]
